FAERS Safety Report 10089189 (Version 1)
Quarter: 2014Q2

REPORT INFORMATION
  Report Type: Spontaneous
  Country: US (occurrence: None)
  Receive Date: 20140418
  Receipt Date: 20140418
  Transmission Date: 20141212
  Serious: Yes (Life-Threatening, Hospitalization, Other)
  Sender: FDA-Public Use
  Company Number: None

PATIENT
  Age: 24 Year
  Sex: Male
  Weight: 72.58 kg

DRUGS (1)
  1. KEPPRA XR [Suspect]
     Indication: EPILEPSY
     Dosage: 1500  TWICE DAILY TAKEN BY MOUTH
     Route: 048

REACTIONS (8)
  - Fatigue [None]
  - Aggression [None]
  - Mood swings [None]
  - Depression [None]
  - Quality of life decreased [None]
  - Suicide attempt [None]
  - Muscle twitching [None]
  - Somnolence [None]
